FAERS Safety Report 5836633-5 (Version None)
Quarter: 2008Q3

REPORT INFORMATION
  Report Type: 
  Country: None (occurrence: None)
  Receive Date: 20080807
  Receipt Date: 20080729
  Transmission Date: 20090109
  Serious: Yes (Hospitalization)
  Sender: FDA-Public Use
  Company Number: US-ABBOTT-08P-163-0467407-00

PATIENT
  Sex: Female
  Weight: 124.85 kg

DRUGS (6)
  1. DEPAKOTE [Suspect]
     Indication: BIPOLAR DISORDER
     Route: 048
     Dates: start: 19940101
  2. WARFARIN SODIUM [Suspect]
     Indication: THROMBOSIS
     Dosage: 5.0MG 2 DAYS A WEEK, 2.5MG OTHER DAYS
     Route: 048
     Dates: start: 20080401
  3. COGENTIN [Concomitant]
     Indication: BIPOLAR DISORDER
     Route: 048
     Dates: start: 19860101
  4. LORAZEPAM [Concomitant]
     Indication: ANXIETY
     Route: 048
     Dates: start: 20070101
  5. LANSOPRAZOLE [Concomitant]
     Indication: GASTROOESOPHAGEAL REFLUX DISEASE
     Dosage: 2 X 25MG DAILY
     Route: 048
  6. TIOTIXENE [Concomitant]
     Indication: BIPOLAR DISORDER
     Route: 048
     Dates: start: 20070101

REACTIONS (9)
  - ABDOMINAL PAIN UPPER [None]
  - ANTICOAGULATION DRUG LEVEL ABOVE THERAPEUTIC [None]
  - BIPOLAR DISORDER [None]
  - CHEST DISCOMFORT [None]
  - GASTRITIS EROSIVE [None]
  - NAUSEA [None]
  - PAIN IN EXTREMITY [None]
  - POLYP [None]
  - THROMBOSIS [None]
